FAERS Safety Report 9400154 (Version 1)
Quarter: 2013Q3

REPORT INFORMATION
  Report Type: Spontaneous
  Country: CO (occurrence: CO)
  Receive Date: 20130715
  Receipt Date: 20130715
  Transmission Date: 20140515
  Serious: Yes (Hospitalization)
  Sender: FDA-Public Use
  Company Number: CO-PFIZER INC-2013204849

PATIENT
  Age: 8 Year
  Sex: Female

DRUGS (1)
  1. GENOTROPIN [Suspect]
     Indication: TURNER^S SYNDROME
     Dosage: 1.2 MG, 1X/DAY
     Route: 058
     Dates: start: 20130613

REACTIONS (2)
  - Convulsion [Recovered/Resolved]
  - Decreased appetite [Recovered/Resolved]
